FAERS Safety Report 10363480 (Version 3)
Quarter: 2014Q3

REPORT INFORMATION
  Report Type: Report from Study
  Country: KR (occurrence: KR)
  Receive Date: 20140805
  Receipt Date: 20140826
  Transmission Date: 20150326
  Serious: Yes (Hospitalization)
  Sender: FDA-Public Use
  Company Number: KR-GLAXOSMITHKLINE-B1020449A

PATIENT
  Age: 71 Year
  Sex: Female
  Weight: 53.2 kg

DRUGS (4)
  1. TRIDOL [Concomitant]
     Indication: BACK PAIN
     Route: 042
     Dates: start: 20140730, end: 20140731
  2. LAPATINIB [Suspect]
     Active Substance: LAPATINIB
     Indication: BREAST NEOPLASM
     Dosage: 1000MG PER DAY
     Route: 048
     Dates: start: 20140717
  3. POTASSIUM CHLORIDE. [Concomitant]
     Active Substance: POTASSIUM CHLORIDE
     Indication: HYPOKALAEMIA
     Dosage: 1200MG THREE TIMES PER DAY
     Route: 048
     Dates: start: 20140730, end: 20140730
  4. VINORELBINE [Suspect]
     Active Substance: VINORELBINE\VINORELBINE TARTRATE
     Indication: BREAST NEOPLASM
     Dosage: 31MG CYCLIC
     Route: 065
     Dates: start: 20140717

REACTIONS (1)
  - Febrile neutropenia [Recovered/Resolved]

NARRATIVE: CASE EVENT DATE: 20140728
